FAERS Safety Report 4505706-1 (Version None)
Quarter: 2004Q4

REPORT INFORMATION
  Report Type: 
  Country: None (occurrence: None)
  Receive Date: 20041119
  Receipt Date: 20041115
  Transmission Date: 20050328
  Serious: Yes (Life-Threatening, Hospitalization)
  Sender: FDA-Public Use
  Company Number: US-MERCK-0411USA02571

PATIENT
  Age: 72 Year
  Sex: Male

DRUGS (6)
  1. VIOXX [Suspect]
     Indication: BACK PAIN
     Route: 048
     Dates: start: 20011008, end: 20011107
  2. ACCUPRIL [Concomitant]
     Route: 065
  3. HYDRODIURIL [Concomitant]
     Route: 065
  4. POTASSIUM (UNSPECIFIED) [Concomitant]
     Route: 065
  5. ALLEGRA [Concomitant]
     Route: 065
  6. CELEBREX [Concomitant]
     Route: 065
     Dates: start: 20011101

REACTIONS (1)
  - MYOCARDIAL INFARCTION [None]
